FAERS Safety Report 21847507 (Version 3)
Quarter: 2023Q2

REPORT INFORMATION
  Report Type: Spontaneous
  Country: US (occurrence: US)
  Receive Date: 20230111
  Receipt Date: 20230420
  Transmission Date: 20230721
  Serious: Yes (Disabling, Other)
  Sender: FDA-Public Use
  Company Number: US-CELLTRION INC.-2022US020708

PATIENT

DRUGS (4)
  1. INFLECTRA [Suspect]
     Active Substance: INFLIXIMAB-DYYB
     Indication: Colitis ulcerative
     Dosage: 100 MG
     Route: 042
     Dates: start: 202205
  2. INFLECTRA [Suspect]
     Active Substance: INFLIXIMAB-DYYB
     Dosage: 10 MG/KG Q 8 WK
     Route: 042
  3. INFLECTRA [Suspect]
     Active Substance: INFLIXIMAB-DYYB
     Dosage: 100 MG ONCE EVERY 2 MONTHS
     Route: 065
     Dates: start: 202212
  4. LEVOXYL [Concomitant]
     Active Substance: LEVOTHYROXINE SODIUM
     Indication: Thyroid therapy
     Dosage: 125 MICROGRAM (DATE STARTED: 30 YEARS AGO)
     Dates: start: 1993

REACTIONS (14)
  - Colitis ulcerative [Recovering/Resolving]
  - Rheumatoid arthritis [Not Recovered/Not Resolved]
  - Decreased appetite [Recovering/Resolving]
  - Myopia [Unknown]
  - Joint swelling [Not Recovered/Not Resolved]
  - Arthralgia [Not Recovered/Not Resolved]
  - Alopecia [Not Recovered/Not Resolved]
  - Muscle spasms [Not Recovered/Not Resolved]
  - Insomnia [Not Recovered/Not Resolved]
  - Myalgia [Recovering/Resolving]
  - Headache [Not Recovered/Not Resolved]
  - White blood cell count decreased [Unknown]
  - Prescribed overdose [Unknown]
  - Underdose [Not Recovered/Not Resolved]

NARRATIVE: CASE EVENT DATE: 20220501
